FAERS Safety Report 18177737 (Version 2)
Quarter: 2020Q3

REPORT INFORMATION
  Report Type: Spontaneous
  Country: DE (occurrence: DE)
  Receive Date: 20200820
  Receipt Date: 20200910
  Transmission Date: 20201103
  Serious: Yes (Other)
  Sender: FDA-Public Use
  Company Number: DE-MYLANLABS-2020M1072142

PATIENT
  Sex: Female
  Weight: 123 kg

DRUGS (35)
  1. VALSARTAN. [Suspect]
     Active Substance: VALSARTAN
     Indication: PRODUCT USED FOR UNKNOWN INDICATION
     Dosage: 80 MILLIGRAM (RADIOPHARM)
  2. INDOMET                            /00003801/ [Concomitant]
     Dosage: UNK (RATIOPHARM)
  3. TILIDIN COMP [Concomitant]
     Active Substance: NALOXONE HYDROCHLORIDE\TILIDINE HYDROCHLORIDE
     Dosage: UNK (STADA)
  4. TORASEMID?1A PHARMA [Concomitant]
     Active Substance: TORSEMIDE
     Dosage: UNK
  5. ZOPLICONE [Concomitant]
     Active Substance: ZOPICLONE
     Dosage: UNK (AL 7.5)
  6. DICLAC                             /00372302/ [Concomitant]
     Active Substance: DICLOFENAC POTASSIUM
     Dosage: UNK (50)
  7. KATADOLON                          /00890102/ [Concomitant]
     Active Substance: FLUPIRTINE
     Dosage: UNK
  8. VALSARTAN DURA 80 MG FILMTABLETTEN [Suspect]
     Active Substance: VALSARTAN
     Indication: HYPERTENSION
     Dosage: 80 MILLIGRAM, QD
     Route: 048
     Dates: start: 201310
  9. CYMBALTA [Concomitant]
     Active Substance: DULOXETINE HYDROCHLORIDE
     Dosage: UNK (KAPSELN)
  10. L THYROXIN HENNING [Concomitant]
     Active Substance: LEVOTHYROXINE SODIUM
     Dosage: UNK (150)
  11. L?THYROXIN                         /00068001/ [Concomitant]
     Active Substance: LEVOTHYROXINE
     Dosage: UNK (WINTHROP)
  12. ZOPLICONE [Concomitant]
     Active Substance: ZOPICLONE
     Dosage: UNK (RATIO 7.5 MG FTA)
  13. VOLTAREN RESINAT                   /00372302/ [Concomitant]
     Active Substance: DICLOFENAC SODIUM
     Dosage: UNK
  14. CLEXANE [Concomitant]
     Active Substance: ENOXAPARIN SODIUM
     Dosage: UNK (40MG 0.4 ML)
  15. ALPRAZOLAM 1 A PHARMA [Concomitant]
     Dosage: UNK
  16. VALSARTAN. [Suspect]
     Active Substance: VALSARTAN
     Indication: HYPERTENSION
     Dosage: 80 MILLIGRAM, QD
     Route: 048
     Dates: start: 201310
  17. IBUFLAM                            /00109201/ [Concomitant]
     Active Substance: IBUPROFEN
     Dosage: UNK (LICHTENSTEIN)
  18. BEROTEC N [Concomitant]
     Active Substance: FENOTEROL HYDROBROMIDE
     Dosage: UNK
  19. IBUFLAM                            /00109201/ [Concomitant]
     Active Substance: IBUPROFEN
     Dosage: UNK
  20. VALSARTAN. [Suspect]
     Active Substance: VALSARTAN
     Dosage: 80 MILLIGRAM
  21. PANTOPRAZOL DURA [Concomitant]
     Dosage: UNK
  22. SIMVA ARISTO [Concomitant]
     Active Substance: SIMVASTATIN
     Dosage: UNK
  23. TORASEMID AL [Concomitant]
     Active Substance: TORSEMIDE
     Dosage: UNK
  24. SYMPAL [Concomitant]
     Active Substance: DEXKETOPROFEN
     Dosage: UNK
  25. ALPRAZOLAM. [Concomitant]
     Active Substance: ALPRAZOLAM
     Dosage: UNK
  26. GABAPENTIN. [Concomitant]
     Active Substance: GABAPENTIN
     Dosage: UNK (MICROLAB)
  27. PENICILLIN                         /00000901/ [Concomitant]
     Active Substance: PENICILLIN G
     Dosage: UNK (V RAT 1 MEGA)
  28. QUETIAPIN NEURAXPHARM [Concomitant]
     Dosage: UNK
  29. LIPOTALON [Concomitant]
     Active Substance: DEXAMETHASONE PALMITATE
     Dosage: UNK
  30. DOXYCYCLIN AL T [Concomitant]
     Dosage: UNK(100)
  31. CITALOPRAM AL [Concomitant]
     Active Substance: CITALOPRAM HYDROBROMIDE
     Dosage: UNK
  32. VALSARTAN. [Suspect]
     Active Substance: VALSARTAN
     Indication: PRODUCT USED FOR UNKNOWN INDICATION
     Dosage: 40 MILLIGRAM
  33. VALSARTAN. [Suspect]
     Active Substance: VALSARTAN
     Indication: PRODUCT USED FOR UNKNOWN INDICATION
     Dosage: 80 MILLIGRAM
  34. ASS 1 A PHARMA [Concomitant]
     Active Substance: ASPIRIN
     Dosage: UNK (ASS 100)
  35. NOVAMINSULFON LICHTENSTEIN [Concomitant]
     Active Substance: METAMIZOLE SODIUM
     Dosage: UNK

REACTIONS (3)
  - Fear of disease [Recovered/Resolved with Sequelae]
  - Mental impairment [Recovered/Resolved with Sequelae]
  - Quality of life decreased [Recovered/Resolved with Sequelae]

NARRATIVE: CASE EVENT DATE: 2018
